FAERS Safety Report 10016750 (Version 1)
Quarter: 2014Q1

REPORT INFORMATION
  Report Type: Spontaneous
  Country: PT (occurrence: PT)
  Receive Date: 20140318
  Receipt Date: 20140318
  Transmission Date: 20141002
  Serious: Yes (Other)
  Sender: FDA-Public Use
  Company Number: PHHY2014PT029666

PATIENT
  Age: 45 Year
  Sex: Male

DRUGS (1)
  1. VANCOMYCIN [Suspect]
     Indication: STAPHYLOCOCCAL INFECTION

REACTIONS (5)
  - Leukopenia [Unknown]
  - Shock [Unknown]
  - Thrombocytopenia [Unknown]
  - Rash generalised [Unknown]
  - Pruritus generalised [Unknown]
